FAERS Safety Report 8484746-4 (Version None)
Quarter: 2012Q3

REPORT INFORMATION
  Report Type: 
  Country: None (occurrence: None)
  Receive Date: 20120703
  Receipt Date: 20120607
  Transmission Date: 20120928
  Serious: No
  Sender: FDA-Public Use
  Company Number: US-TEVA-342045USA

PATIENT
  Sex: Female
  Weight: 68.554 kg

DRUGS (9)
  1. NUVIGIL [Suspect]
     Indication: SOMNOLENCE
     Dosage: 150 MILLIGRAM;
     Route: 048
     Dates: start: 20120531
  2. LIDOCAINE [Concomitant]
     Indication: PAIN
     Route: 061
  3. IMODIUM [Concomitant]
     Indication: DIARRHOEA
     Dosage: AS NEEDED
     Route: 048
  4. LISINOPRIL [Concomitant]
     Indication: HYPERTENSION
     Dosage: 20 MILLIGRAM;
     Route: 048
  5. TRAMADOL HCL [Concomitant]
     Indication: PAIN
     Route: 048
  6. LIBRAX [Concomitant]
     Indication: IRRITABLE BOWEL SYNDROME
     Dosage: 15 MILLIGRAM;
     Route: 048
  7. LAMOTRIGINE [Concomitant]
     Indication: BIPOLAR DISORDER
     Dosage: 100 MILLIGRAM;
     Route: 048
  8. DULOXETINE HYDROCHLORIDE [Concomitant]
     Indication: DEPRESSION
     Route: 048
  9. MULTIPLE VITAMINS [Concomitant]

REACTIONS (5)
  - POOR QUALITY SLEEP [None]
  - MEMORY IMPAIRMENT [None]
  - DISORIENTATION [None]
  - CONFUSIONAL STATE [None]
  - DEPRESSED LEVEL OF CONSCIOUSNESS [None]
